FAERS Safety Report 6916710-8 (Version None)
Quarter: 2010Q3

REPORT INFORMATION
  Report Type: 
  Country: None (occurrence: None)
  Receive Date: 20100810
  Receipt Date: 20100722
  Transmission Date: 20110219
  Serious: Yes (Death, Hospitalization, Other)
  Sender: FDA-Public Use
  Company Number: US-BAYER-200839533NA

PATIENT
  Age: 35 Year
  Sex: Female
  Weight: 91 kg

DRUGS (9)
  1. YASMIN [Suspect]
     Indication: CONTRACEPTION
     Route: 048
     Dates: start: 20050101, end: 20080701
  2. DROSPIRENONE AND EHTINYL ESTRADIOL [Suspect]
     Indication: PRODUCT USED FOR UNKNOWN INDICATION
     Route: 048
     Dates: start: 20080701, end: 20081101
  3. AMOXICILLIN [Concomitant]
     Indication: PRODUCT USED FOR UNKNOWN INDICATION
     Dates: start: 20080701
  4. RED BLOOD CELLS [Concomitant]
     Indication: PRODUCT USED FOR UNKNOWN INDICATION
     Route: 042
     Dates: start: 20081115
  5. MANNITOL [Concomitant]
     Indication: PRODUCT USED FOR UNKNOWN INDICATION
     Dosage: 0.5 GM/KG IV EVERY 4-6 HOURS
     Dates: start: 20081115
  6. ZOSYN [Concomitant]
     Indication: PRODUCT USED FOR UNKNOWN INDICATION
     Dates: start: 20081116
  7. VANCOMYCIN [Concomitant]
     Indication: PRODUCT USED FOR UNKNOWN INDICATION
     Dates: start: 20081116
  8. PHENYTOIN [Concomitant]
     Indication: PRODUCT USED FOR UNKNOWN INDICATION
     Dates: start: 20081116
  9. ACETAMINOPHEN [Concomitant]
     Indication: PRODUCT USED FOR UNKNOWN INDICATION
     Dates: start: 20081116

REACTIONS (10)
  - BRAIN COMPRESSION [None]
  - BRAIN HERNIATION [None]
  - BRAIN OEDEMA [None]
  - CEREBRAL MICROHAEMORRHAGE [None]
  - HEADACHE [None]
  - HYPERTENSION [None]
  - INTRACRANIAL VENOUS SINUS THROMBOSIS [None]
  - NEUROLOGICAL DECOMPENSATION [None]
  - SYNCOPE [None]
  - VERTIGO [None]
